FAERS Safety Report 15329101 (Version 1)
Quarter: 2018Q3

REPORT INFORMATION
  Report Type: Spontaneous
  Country: US (occurrence: US)
  Receive Date: 20180823
  Receipt Date: 20180823
  Transmission Date: 20181010
  Serious: No
  Sender: FDA-Public Use
  Company Number: None

PATIENT
  Age: 68 Year
  Sex: Female

DRUGS (1)
  1. COSENTYX [Suspect]
     Active Substance: SECUKINUMAB
     Indication: PSORIASIS
     Dosage: ?          OTHER FREQUENCY:EVERY 4 WEEKS;?
     Route: 058
     Dates: start: 20161116

REACTIONS (5)
  - Hot flush [None]
  - Gastric disorder [None]
  - Chest discomfort [None]
  - Abdominal discomfort [None]
  - Dyspnoea [None]

NARRATIVE: CASE EVENT DATE: 20180815
